FAERS Safety Report 9266159 (Version 2)
Quarter: 2013Q2

REPORT INFORMATION
  Report Type: Spontaneous
  Country: US (occurrence: US)
  Receive Date: 20130502
  Receipt Date: 20130621
  Transmission Date: 20140414
  Serious: Yes (Hospitalization, Other)
  Sender: FDA-Public Use
  Company Number: US-AMGEN-USASP2013030290

PATIENT
  Age: 85 Year
  Sex: Female

DRUGS (1)
  1. PROCRIT [Suspect]
     Indication: PRODUCT USED FOR UNKNOWN INDICATION
     Dosage: 20000 UNIT, EVERY TWO WEEKS
     Route: 065

REACTIONS (5)
  - Haemorrhage [Recovered/Resolved]
  - Fall [Recovered/Resolved]
  - Rib fracture [Unknown]
  - Haematocrit decreased [Unknown]
  - Injury [Unknown]
